FAERS Safety Report 21742360 (Version 3)
Quarter: 2023Q1

REPORT INFORMATION
  Report Type: Report from Study
  Country: US (occurrence: US)
  Receive Date: 20221216
  Receipt Date: 20230306
  Transmission Date: 20230417
  Serious: Yes (Other)
  Sender: FDA-Public Use
  Company Number: US-XERIS PHARMACEUTICALS-2022XER00379

PATIENT
  Sex: Female
  Weight: 65.76 kg

DRUGS (1)
  1. RECORLEV [Suspect]
     Active Substance: LEVOKETOCONAZOLE
     Indication: Pituitary-dependent Cushing^s syndrome
     Dosage: 150 MG, 2X/DAY WITH OR WITHOUT FOOD
     Route: 048
     Dates: start: 2022

REACTIONS (7)
  - Fatigue [Recovering/Resolving]
  - Vomiting [Recovered/Resolved]
  - Polymenorrhoea [Recovering/Resolving]
  - COVID-19 [Recovered/Resolved]
  - Migraine [Recovered/Resolved]
  - Pain [Recovered/Resolved]
  - Initial insomnia [Unknown]

NARRATIVE: CASE EVENT DATE: 20220101
